FAERS Safety Report 24449668 (Version 1)
Quarter: 2024Q4

REPORT INFORMATION
  Report Type: Spontaneous
  Country: US (occurrence: None)
  Receive Date: 20241016
  Receipt Date: 20241016
  Transmission Date: 20250115
  Serious: Yes (Other)
  Sender: Public
  Company Number: None

PATIENT
  Sex: Male

DRUGS (11)
  1. CREON [Suspect]
     Active Substance: PANCRELIPASE AMYLASE\PANCRELIPASE LIPASE\PANCRELIPASE PROTEASE
     Indication: Cystic fibrosis lung
     Dosage: FREQ: TAKE 2 (TWO) CAPSULES BY MOUTH 3 TIMES DAILY (WITH MEALS). MAY ALSO TAKE 1 (ONE) CAPSULE ?DAIL
     Route: 048
     Dates: start: 20240131
  2. ALDACTONE TAB 100MG [Concomitant]
  3. ALENDRONATE TAB 10MG [Concomitant]
  4. ALENDRONATE [Concomitant]
     Active Substance: ALENDRONATE SODIUM
  5. AZITHROMYCIN [Concomitant]
     Active Substance: AZITHROMYCIN
  6. CIPROFLOXACN TAB 500MG [Concomitant]
  7. CITALOPRAM TAB 40MG [Concomitant]
  8. DULCOLAX TAB 5MG EC [Concomitant]
  9. DULOXETINE CAP 20MG [Concomitant]
  10. FLUTICASONE [Concomitant]
     Active Substance: FLUTICASONE
  11. GABAPENTIN [Concomitant]
     Active Substance: GABAPENTIN

REACTIONS (3)
  - Urinary tract infection [None]
  - Product dose omission in error [None]
  - Product dose omission in error [None]
